FAERS Safety Report 7527471-6 (Version None)
Quarter: 2011Q2

REPORT INFORMATION
  Report Type: 
  Country: None (occurrence: None)
  Receive Date: 20110512
  Receipt Date: 20110304
  Transmission Date: 20111010
  Serious: Yes (Hospitalization)
  Sender: FDA-Public Use
  Company Number: 1000019131

PATIENT
  Age: 46 Year
  Sex: Female

DRUGS (4)
  1. SAVELLA [Suspect]
     Indication: FIBROMYALGIA
     Dosage: 100 MG (50 MG, 2 IN 1 D), ORAL
     Route: 048
     Dates: start: 20100801, end: 20110301
  2. SAVELLA [Suspect]
     Indication: FIBROMYALGIA
     Dosage: 12.5 MG (12.5 MG, 1 IN 1 D), ORAL, 25 MG (12.5 MG, 2 IN 1 D), ORAL, 50 MG (25 MG, 2 IN 1 D), ORAL
     Route: 048
     Dates: start: 20100801, end: 20100801
  3. SAVELLA [Suspect]
     Indication: FIBROMYALGIA
     Dosage: 12.5 MG (12.5 MG, 1 IN 1 D), ORAL, 25 MG (12.5 MG, 2 IN 1 D), ORAL, 50 MG (25 MG, 2 IN 1 D), ORAL
     Route: 048
     Dates: start: 20100801, end: 20100801
  4. SAVELLA [Suspect]
     Indication: FIBROMYALGIA
     Dosage: 12.5 MG (12.5 MG, 1 IN 1 D), ORAL, 25 MG (12.5 MG, 2 IN 1 D), ORAL, 50 MG (25 MG, 2 IN 1 D), ORAL
     Route: 048
     Dates: start: 20100801, end: 20100801

REACTIONS (11)
  - MEMORY IMPAIRMENT [None]
  - MYALGIA [None]
  - MUSCULOSKELETAL STIFFNESS [None]
  - PANIC ATTACK [None]
  - BLOOD PRESSURE INCREASED [None]
  - MUSCLE SPASMS [None]
  - HEART RATE INCREASED [None]
  - MUSCLE TIGHTNESS [None]
  - ASTHENIA [None]
  - DEPRESSION [None]
  - INSOMNIA [None]
